FAERS Safety Report 25661969 (Version 1)
Quarter: 2025Q3

REPORT INFORMATION
  Report Type: Spontaneous
  Country: US (occurrence: US)
  Receive Date: 20250809
  Receipt Date: 20250809
  Transmission Date: 20251021
  Serious: Yes (Disabling, Other)
  Sender: AMGEN
  Company Number: US-AMGEN-HZN-2021-007058

PATIENT
  Age: 52 Year
  Sex: Female

DRUGS (48)
  1. TEPEZZA [Suspect]
     Active Substance: TEPROTUMUMAB-TRBW
     Indication: Endocrine ophthalmopathy
     Route: 040
     Dates: start: 20210615, end: 20210615
  2. TEPEZZA [Suspect]
     Active Substance: TEPROTUMUMAB-TRBW
     Route: 040
     Dates: start: 20210709, end: 20210709
  3. TEPEZZA [Suspect]
     Active Substance: TEPROTUMUMAB-TRBW
     Route: 040
     Dates: start: 20210730, end: 20210730
  4. TEPEZZA [Suspect]
     Active Substance: TEPROTUMUMAB-TRBW
     Route: 040
     Dates: start: 20210802, end: 20210802
  5. TEPEZZA [Suspect]
     Active Substance: TEPROTUMUMAB-TRBW
     Route: 040
     Dates: start: 20210820, end: 20210820
  6. TEPEZZA [Suspect]
     Active Substance: TEPROTUMUMAB-TRBW
     Route: 040
     Dates: start: 20210910, end: 20210910
  7. TEPEZZA [Suspect]
     Active Substance: TEPROTUMUMAB-TRBW
     Route: 040
     Dates: start: 20210927, end: 20210927
  8. TEPEZZA [Suspect]
     Active Substance: TEPROTUMUMAB-TRBW
     Route: 040
     Dates: start: 20211005, end: 20211005
  9. PROTONIX [Concomitant]
     Active Substance: PANTOPRAZOLE SODIUM
     Indication: Gastrooesophageal reflux disease
     Dosage: 40 MILLIGRAM, QD
     Route: 048
     Dates: start: 20210621, end: 20210621
  10. PROTONIX [Concomitant]
     Active Substance: PANTOPRAZOLE SODIUM
     Dosage: 40 MILLIGRAM, QD
     Route: 048
     Dates: start: 20221206, end: 20230217
  11. SODIUM CHLORIDE [Concomitant]
     Active Substance: SODIUM CHLORIDE
     Route: 040
     Dates: start: 20210615
  12. MINIPRESS [Concomitant]
     Active Substance: PRAZOSIN HYDROCHLORIDE
     Dosage: 2 MILLIGRAM, QD
     Route: 065
     Dates: start: 20210629
  13. FLONASE [Concomitant]
     Active Substance: FLUTICASONE PROPIONATE
     Route: 045
     Dates: start: 20210630, end: 20211102
  14. PROVENTIL [Concomitant]
     Active Substance: ALBUTEROL
     Route: 065
  15. VENTOLIN [Concomitant]
     Active Substance: ALBUTEROL SULFATE
     Route: 065
  16. INFLUENZA VIRUS VACCINE [Concomitant]
     Active Substance: INFLUENZA VIRUS VACCINE
     Route: 065
  17. MODERNA COVID-19 VACCINE [Concomitant]
     Active Substance: ELASOMERAN
     Route: 065
     Dates: start: 20210318
  18. MODERNA COVID-19 VACCINE [Concomitant]
     Active Substance: ELASOMERAN
     Route: 065
     Dates: start: 20210414
  19. PROAIR HFA [Concomitant]
     Active Substance: ALBUTEROL SULFATE
     Route: 065
  20. PROVENTIL HFA [Concomitant]
     Active Substance: ALBUTEROL SULFATE
     Route: 065
  21. VENTOLIN HFA [Concomitant]
     Active Substance: ALBUTEROL SULFATE
     Route: 065
  22. ZITHROMAX [Concomitant]
     Active Substance: AZITHROMYCIN DIHYDRATE
     Route: 065
  23. LIORESAL [Concomitant]
     Active Substance: BACLOFEN
     Route: 065
  24. TESSALON [Concomitant]
     Active Substance: BENZONATATE
     Route: 065
  25. CALCIUM [Concomitant]
     Active Substance: CALCIUM
     Route: 065
  26. PERIDEX [Concomitant]
     Active Substance: CHLORHEXIDINE GLUCONATE
     Route: 065
  27. ONFI [Concomitant]
     Active Substance: CLOBAZAM
     Route: 065
  28. KLONOPIN [Concomitant]
     Active Substance: CLONAZEPAM
     Route: 065
  29. FLOVENT HFA [Concomitant]
     Active Substance: FLUTICASONE PROPIONATE
     Route: 065
  30. NEURONTIN [Concomitant]
     Active Substance: GABAPENTIN
     Route: 065
  31. MUCINEX DM [Concomitant]
     Active Substance: DEXTROMETHORPHAN HYDROBROMIDE\GUAIFENESIN
     Route: 065
  32. ANUSOL HC [Concomitant]
     Active Substance: HYDROCORTISONE
     Route: 065
  33. ATARAX [Concomitant]
     Active Substance: HYDROXYZINE HYDROCHLORIDE
     Route: 065
  34. LEVSIN [Concomitant]
     Active Substance: HYOSCYAMINE SULFATE
     Route: 065
  35. DUONEB [Concomitant]
     Active Substance: ALBUTEROL SULFATE\IPRATROPIUM BROMIDE
     Route: 065
  36. KEPPRA [Concomitant]
     Active Substance: LEVETIRACETAM
     Route: 065
  37. LEVAQUIN [Concomitant]
     Active Substance: LEVOFLOXACIN
     Route: 065
  38. LEVOTHYROXINE [Concomitant]
     Active Substance: LEVOTHYROXINE
     Route: 065
  39. LIDODERM [Concomitant]
     Active Substance: LIDOCAINE
     Route: 065
  40. CLARITIN [Concomitant]
     Active Substance: LORATADINE
     Route: 065
  41. MAGNESIUM OXIDE [Concomitant]
     Active Substance: MAGNESIUM OXIDE
     Route: 065
  42. NARCAN [Concomitant]
     Active Substance: NALOXONE HYDROCHLORIDE
     Route: 065
  43. PHENERGAN [Concomitant]
     Active Substance: PROMETHAZINE HYDROCHLORIDE
     Route: 065
  44. VITAMIN D3 [Concomitant]
     Active Substance: CHOLECALCIFEROL
     Route: 065
  45. ZONEGRAN [Concomitant]
     Active Substance: ZONISAMIDE
     Route: 065
  46. TRINTELLIX [Concomitant]
     Active Substance: VORTIOXETINE HYDROBROMIDE
     Route: 065
  47. ACTEMRA [Concomitant]
     Active Substance: TOCILIZUMAB
     Route: 065
  48. SYNTHROID [Concomitant]
     Active Substance: LEVOTHYROXINE SODIUM
     Route: 065

REACTIONS (58)
  - Deafness neurosensory [Unknown]
  - Impaired gastric emptying [Unknown]
  - Tricuspid valve incompetence [Unknown]
  - Mitral valve incompetence [Unknown]
  - Acute kidney injury [Unknown]
  - Metabolic dysfunction-associated steatohepatitis [Unknown]
  - Drug reaction with eosinophilia and systemic symptoms [Unknown]
  - Thrombocytopenia [Unknown]
  - Seizure [Unknown]
  - Atrial septal defect [Unknown]
  - Epilepsy [Unknown]
  - Disability [Unknown]
  - Essential tremor [Unknown]
  - Carpal tunnel syndrome [Unknown]
  - Fibromyalgia [Unknown]
  - Nasal septum deviation [Unknown]
  - Persistent depressive disorder [Unknown]
  - Herpes simplex [Unknown]
  - Haematuria [Unknown]
  - Migraine without aura [Unknown]
  - Anxiety disorder [Unknown]
  - Post-traumatic stress disorder [Unknown]
  - Asthma [Unknown]
  - Chronic gastritis [Unknown]
  - Left atrial enlargement [Unknown]
  - Retention cyst [Unknown]
  - Chronic sinusitis [Unknown]
  - Sleep apnoea syndrome [Unknown]
  - Pain [Unknown]
  - Dehydration [Unknown]
  - Tooth abscess [Unknown]
  - Gastrooesophageal reflux disease [Unknown]
  - Chronic sinusitis [Unknown]
  - Paraesthesia [Unknown]
  - Dizziness [Unknown]
  - Hepatic steatosis [Unknown]
  - Essential hypertension [Unknown]
  - Flank pain [Unknown]
  - Carbon dioxide decreased [Unknown]
  - Blood creatinine increased [Unknown]
  - Blood glucose increased [Unknown]
  - Blood alkaline phosphatase increased [Unknown]
  - Alanine aminotransferase increased [Unknown]
  - Abdominal pain lower [Unknown]
  - Nausea [Unknown]
  - Diarrhoea [Unknown]
  - Weight decreased [Unknown]
  - Abdominal pain [Unknown]
  - Liver function test increased [Unknown]
  - Gastrostomy tube site complication [Unknown]
  - Bronchitis [Unknown]
  - Constipation [Unknown]
  - Sinus pain [Unknown]
  - Dysuria [Unknown]
  - Micturition urgency [Unknown]
  - Culture urine positive [Unknown]
  - White blood cells urine abnormal [Unknown]
  - Blood urine present [Unknown]

NARRATIVE: CASE EVENT DATE: 20210826
